FAERS Safety Report 25366804 (Version 1)
Quarter: 2025Q2

REPORT INFORMATION
  Report Type: Spontaneous
  Country: US (occurrence: US)
  Receive Date: 20250528
  Receipt Date: 20250528
  Transmission Date: 20250717
  Serious: No
  Sender: RANBAXY
  Company Number: US-SUN PHARMACEUTICAL INDUSTRIES LTD-2024R1-464028

PATIENT
  Age: 81 Year
  Sex: Male

DRUGS (1)
  1. MORPHINE [Suspect]
     Active Substance: MORPHINE
     Indication: Pain management
     Dosage: 15 MILLIGRAM, BID
     Route: 065
     Dates: start: 20240813, end: 20240816

REACTIONS (5)
  - Pain [Unknown]
  - Therapy cessation [Unknown]
  - Nausea [Unknown]
  - Abdominal discomfort [Unknown]
  - Myalgia [Unknown]
